FAERS Safety Report 14377801 (Version 2)
Quarter: 2018Q1

REPORT INFORMATION
  Report Type: Spontaneous
  Country: PL (occurrence: PL)
  Receive Date: 20180111
  Receipt Date: 20180119
  Transmission Date: 20180509
  Serious: Yes (Other)
  Sender: FDA-Public Use
  Company Number: PL-SA-2018SA004335

PATIENT
  Age: 69 Year
  Sex: Female
  Weight: 84 kg

DRUGS (12)
  1. RAMIPRIL. [Suspect]
     Active Substance: RAMIPRIL
     Route: 065
  2. CILAZAPRIL [Suspect]
     Active Substance: CILAZAPRIL ANHYDROUS
     Route: 065
  3. AMLODIPINE [Suspect]
     Active Substance: AMLODIPINE BESYLATE
     Route: 065
  4. PERINDOPRIL [Suspect]
     Active Substance: PERINDOPRIL
     Route: 065
  5. ACETYLSALICYLIC ACID [Suspect]
     Active Substance: ASPIRIN
     Route: 065
  6. TELMISARTAN. [Suspect]
     Active Substance: TELMISARTAN
     Route: 065
  7. METOPROLOL. [Suspect]
     Active Substance: METOPROLOL
     Dosage: 1-0-0
     Route: 065
  8. VALSARTAN. [Suspect]
     Active Substance: VALSARTAN
     Route: 065
  9. LERCANIDIPINE [Suspect]
     Active Substance: LERCANIDIPINE
     Route: 065
  10. INDAPAMIDE. [Suspect]
     Active Substance: INDAPAMIDE
     Route: 065
  11. SIMVASTATIN. [Suspect]
     Active Substance: SIMVASTATIN
     Route: 065
  12. LEVOTHYROXINE SODIUM. [Concomitant]
     Active Substance: LEVOTHYROXINE SODIUM
     Indication: HYPOTHYROIDISM

REACTIONS (10)
  - Cough [Unknown]
  - Chest pain [Unknown]
  - Drug intolerance [Unknown]
  - Tinnitus [Unknown]
  - Confusional state [Unknown]
  - Thrombocytopenia [Unknown]
  - Labile blood pressure [Unknown]
  - Muscle spasms [Unknown]
  - Oedema peripheral [Unknown]
  - Myalgia [Unknown]
